FAERS Safety Report 14270127 (Version 1)
Quarter: 2017Q4

REPORT INFORMATION
  Report Type: Spontaneous
  Country: CH (occurrence: CH)
  Receive Date: 20171211
  Receipt Date: 20171211
  Transmission Date: 20180321
  Serious: Yes (Disabling, Other)
  Sender: FDA-Public Use
  Company Number: CH-OTSUKA-2017_025885

PATIENT
  Sex: Female
  Weight: 64 kg

DRUGS (2)
  1. ABILIFY [Suspect]
     Active Substance: ARIPIPRAZOLE
     Indication: SCHIZOPHRENIA
     Dosage: 20 MG, QD (20MG,DOSE REDUCTION TO 5MG (1 PER DAY) WITHIN THE LAST 10 YEARS OF THERAPY)
     Route: 048
     Dates: start: 2007
  2. ABILIFY [Suspect]
     Active Substance: ARIPIPRAZOLE
     Indication: PRODUCT USED FOR UNKNOWN INDICATION
     Dosage: 5 MG, QD (20MG,DOSE REDUCTION TO 5MG (1 PER DAY) WITHIN THE LAST 10 YEARS OF THERAPY)
     Route: 048

REACTIONS (13)
  - Dyskinesia [Not Recovered/Not Resolved]
  - Paraesthesia [Not Recovered/Not Resolved]
  - Tremor [Not Recovered/Not Resolved]
  - Dysaesthesia [Not Recovered/Not Resolved]
  - Off label use [Unknown]
  - Headache [Not Recovered/Not Resolved]
  - Thinking abnormal [Unknown]
  - Speech disorder [Unknown]
  - Tardive dyskinesia [Not Recovered/Not Resolved]
  - Myalgia [Not Recovered/Not Resolved]
  - Salivary hypersecretion [Unknown]
  - Arthralgia [Not Recovered/Not Resolved]
  - Prescribed overdose [Unknown]

NARRATIVE: CASE EVENT DATE: 2007
